FAERS Safety Report 7186466 (Version 5)
Quarter: 2014Q1

REPORT INFORMATION
  Report Type: Spontaneous
  Country: DK (occurrence: DK)
  Receive Date: 20091124
  Receipt Date: 20140113
  Transmission Date: 20141002
  Serious: Yes (Disabling)
  Sender: FDA-Public Use
  Company Number: DK-BRACCO-000040

PATIENT
  Age: 66 Year
  Sex: Male
  Weight: 83 kg

DRUGS (15)
  1. MULTIHANCE [Suspect]
     Indication: RENAL TRANSPLANT
     Route: 042
     Dates: start: 20050107, end: 20050107
  2. PROHANCE [Suspect]
     Indication: ANGIOGRAM
     Route: 042
     Dates: start: 20050107, end: 20050107
  3. IMODIUM [Concomitant]
     Route: 048
  4. PANODIL [Concomitant]
     Route: 048
  5. NEXIUM [Concomitant]
     Route: 048
  6. PHOS-EX [Concomitant]
     Route: 048
  7. VIBEDEN [Concomitant]
     Route: 030
  8. RENAGEL [Concomitant]
     Route: 048
  9. VENOFER [Concomitant]
     Route: 042
  10. EPREX [Concomitant]
     Route: 042
  11. MANDOLGIN [Concomitant]
     Route: 048
  12. ATACAND [Concomitant]
     Route: 048
  13. ZYRTEC [Concomitant]
     Route: 048
  14. RESONIUM [Concomitant]
     Route: 054
  15. NORVASC [Concomitant]
     Route: 048

REACTIONS (3)
  - Respiratory failure [Not Recovered/Not Resolved]
  - Pulmonary hypertension [Not Recovered/Not Resolved]
  - Nephrogenic systemic fibrosis [Not Recovered/Not Resolved]
